FAERS Safety Report 4782546-X (Version None)
Quarter: 2005Q3

REPORT INFORMATION
  Report Type: 
  Country: None (occurrence: None)
  Receive Date: 20050929
  Receipt Date: 20050304
  Transmission Date: 20060218
  Serious: No
  Sender: FDA-Public Use
  Company Number: 403122

PATIENT
  Age: 71 Year
  Sex: Female
  Weight: 65.9 kg

DRUGS (10)
  1. COREG [Suspect]
     Indication: DRUG USE FOR UNKNOWN INDICATION
     Route: 048
  2. KLONOPIN [Concomitant]
  3. GINGKO [Concomitant]
  4. RED YEAST RICE [Concomitant]
  5. ASPIRIN [Concomitant]
  6. CAT'S CLAW [Concomitant]
  7. FLAXSEED OIL [Concomitant]
  8. L-CARNITINE [Concomitant]
     Dosage: 500MG PER DAY
  9. CALCIUM MAGNESIUM [Concomitant]
  10. CURCUMIN [Concomitant]

REACTIONS (3)
  - AGITATION [None]
  - HEART RATE INCREASED [None]
  - PSYCHOMOTOR HYPERACTIVITY [None]
